FAERS Safety Report 8610792-3 (Version None)
Quarter: 2012Q3

REPORT INFORMATION
  Report Type: 
  Country: None (occurrence: None)
  Receive Date: 20120822
  Receipt Date: 20120810
  Transmission Date: 20120928
  Serious: Yes (Hospitalization)
  Sender: FDA-Public Use
  Company Number: US-ELI_LILLY_AND_COMPANY-US201107000705

PATIENT
  Sex: Female

DRUGS (5)
  1. FORTEO [Suspect]
     Dosage: 20 UG, QD
     Route: 065
  2. FORTEO [Suspect]
     Dosage: 20 UG, QD
     Route: 065
     Dates: end: 20120501
  3. FORTEO [Suspect]
     Indication: OSTEOPOROSIS
     Dosage: 20 UG, QD
     Route: 065
     Dates: start: 20110406
  4. FORTEO [Suspect]
     Dosage: 20 UG, QD
     Route: 065
  5. FORTEO [Suspect]
     Dosage: 20 UG, QD
     Route: 065

REACTIONS (15)
  - WEIGHT FLUCTUATION [None]
  - NERVOUSNESS [None]
  - INJECTION SITE ERYTHEMA [None]
  - INJECTION SITE PAIN [None]
  - RENAL DISORDER [None]
  - ABDOMINAL PAIN [None]
  - FAECES DISCOLOURED [None]
  - INJURY ASSOCIATED WITH DEVICE [None]
  - MUSCULOSKELETAL CHEST PAIN [None]
  - ARTHROPATHY [None]
  - INJURY [None]
  - DIARRHOEA [None]
  - FEAR [None]
  - ROTATOR CUFF SYNDROME [None]
  - FALL [None]
